FAERS Safety Report 10756466 (Version 1)
Quarter: 2015Q1

REPORT INFORMATION
  Report Type: Spontaneous
  Country: US (occurrence: US)
  Receive Date: 20150202
  Receipt Date: 20150202
  Transmission Date: 20150721
  Serious: No
  Sender: FDA-Public Use
  Company Number: US-BAUSCH-SYM-2013-14154

PATIENT
  Sex: Male

DRUGS (1)
  1. XENAZINE [Suspect]
     Active Substance: TETRABENAZINE
     Indication: HUNTINGTON^S DISEASE
     Route: 048
     Dates: start: 20131128

REACTIONS (8)
  - Apathy [Not Recovered/Not Resolved]
  - Movement disorder [Unknown]
  - Restlessness [Unknown]
  - Dysphagia [Not Recovered/Not Resolved]
  - Fall [Unknown]
  - Somnolence [Not Recovered/Not Resolved]
  - Asthenia [Unknown]
  - Balance disorder [Unknown]
